FAERS Safety Report 14076364 (Version 8)
Quarter: 2019Q2

REPORT INFORMATION
  Report Type: Spontaneous
  Country: US (occurrence: US)
  Receive Date: 20171011
  Receipt Date: 20190610
  Transmission Date: 20190711
  Serious: Yes (Other)
  Sender: FDA-Public Use
  Company Number: US-AMGEN-USASP2017149651

PATIENT
  Age: 51 Year
  Sex: Female
  Weight: 79.82 kg

DRUGS (35)
  1. AFINITOR [Concomitant]
     Active Substance: EVEROLIMUS
     Dosage: 10 MG, QD
  2. GEMZAR [Concomitant]
     Active Substance: GEMCITABINE HYDROCHLORIDE
     Indication: BREAST CANCER METASTATIC
     Dosage: 750 MG/M2, UNK
  3. EVEROLIMUS. [Concomitant]
     Active Substance: EVEROLIMUS
     Indication: BREAST CANCER METASTATIC
     Dosage: UNK
  4. ARIXTRA [Concomitant]
     Active Substance: FONDAPARINUX SODIUM
     Indication: PULMONARY EMBOLISM
  5. ZANTAC [Concomitant]
     Active Substance: RANITIDINE HYDROCHLORIDE
     Dosage: UNK
  6. XANAX [Concomitant]
     Active Substance: ALPRAZOLAM
     Dosage: UNK
  7. PROAIR HFA [Concomitant]
     Active Substance: ALBUTEROL SULFATE
     Dosage: UNK
  8. NEUPOGEN [Suspect]
     Active Substance: FILGRASTIM
     Indication: NEUTROPENIA
     Dosage: 480 MCG, AS NECESSARY
     Route: 065
  9. NYSTATIN. [Concomitant]
     Active Substance: NYSTATIN
     Dosage: UNK
  10. XGEVA [Suspect]
     Active Substance: DENOSUMAB
     Indication: BREAST CANCER STAGE III
  11. EXEMESTANE. [Concomitant]
     Active Substance: EXEMESTANE
     Dosage: 25 MG, QD
  12. 5-FU [Concomitant]
     Active Substance: FLUOROURACIL
     Dosage: 1500 MG/M2, UNK
  13. PLATINOL [Concomitant]
     Active Substance: CISPLATIN
     Indication: BREAST CANCER METASTATIC
     Dosage: UNK
     Dates: start: 20131028
  14. INJECTAFER [Concomitant]
     Active Substance: FERRIC CARBOXYMALTOSE
     Indication: IRON DEFICIENCY ANAEMIA
     Dosage: 750 MCG, UNK
     Dates: start: 20150608
  15. ALPHA LIPOIC ACID [Concomitant]
     Active Substance: .ALPHA.-LIPOIC ACID
     Dosage: UNK
  16. XGEVA [Suspect]
     Active Substance: DENOSUMAB
     Indication: BREAST CANCER METASTATIC
  17. 5-FU [Concomitant]
     Active Substance: FLUOROURACIL
     Indication: BREAST CANCER METASTATIC
     Dosage: 800 MG/M2, UNK
     Dates: start: 20131023
  18. CISPLATIN. [Concomitant]
     Active Substance: CISPLATIN
     Dosage: 75 MG/M2, UNK
  19. TAXOL [Concomitant]
     Active Substance: PACLITAXEL
     Indication: BREAST CANCER METASTATIC
     Dosage: 135 MG/M2, UNK
  20. ETOPOSIDE. [Concomitant]
     Active Substance: ETOPOSIDE
     Indication: BREAST CANCER METASTATIC
  21. VITAMIN B12 [Concomitant]
     Active Substance: CYANOCOBALAMIN
     Dosage: UNK
  22. TOPROL XL [Concomitant]
     Active Substance: METOPROLOL SUCCINATE
     Indication: HYPERTENSION
     Dosage: UNK
  23. MEDROL [Concomitant]
     Active Substance: METHYLPREDNISOLONE
     Dosage: UNK
     Dates: start: 20150527
  24. FEMARA [Concomitant]
     Active Substance: LETROZOLE
     Dosage: 2.5 MG, QD
  25. 5-FU [Concomitant]
     Active Substance: FLUOROURACIL
     Dosage: 400 MG/M2, UNK
     Route: 040
  26. 5-FU [Concomitant]
     Active Substance: FLUOROURACIL
     Dosage: 2400 UNK, UNK
  27. MITOMYCIN. [Concomitant]
     Active Substance: MITOMYCIN
     Indication: BREAST CANCER METASTATIC
     Dosage: UNK
     Dates: start: 20131028
  28. ABRAXANE [Concomitant]
     Active Substance: PACLITAXEL
     Indication: BREAST CANCER METASTATIC
     Dosage: UNK
     Dates: start: 20131120
  29. TAXOTERE [Concomitant]
     Active Substance: DOCETAXEL
     Indication: BREAST CANCER METASTATIC
     Dosage: 50 MG/M2, UNK
     Dates: start: 20140130
  30. CUBICIN [Concomitant]
     Active Substance: DAPTOMYCIN
     Indication: DEVICE RELATED INFECTION
     Dosage: 4 MG/M2, UNK
     Route: 042
  31. EFFEXOR [Concomitant]
     Active Substance: VENLAFAXINE HYDROCHLORIDE
     Indication: DEPRESSION
  32. XGEVA [Suspect]
     Active Substance: DENOSUMAB
     Indication: PROPHYLAXIS
     Dosage: 120 MG, Q4WK
     Route: 058
     Dates: start: 20150402, end: 201703
  33. HERCEPTIN [Concomitant]
     Active Substance: TRASTUZUMAB
     Dosage: 150 MG, QWK
     Route: 042
  34. FLOVENT [Concomitant]
     Active Substance: FLUTICASONE PROPIONATE
     Indication: RADIATION PNEUMONITIS
     Dosage: 2 PUFFS, BID
  35. PENICILLIN [Concomitant]
     Active Substance: PENICILLIN
     Dosage: 500 MG, QID

REACTIONS (18)
  - Radiation pneumonitis [Unknown]
  - Infection [Not Recovered/Not Resolved]
  - Neutropenia [Unknown]
  - Liver function test increased [Recovered/Resolved]
  - Chondromalacia [Unknown]
  - Iron deficiency anaemia [Recovered/Resolved]
  - Oesophagitis [Unknown]
  - Wheezing [Unknown]
  - Malaise [Unknown]
  - Tooth infection [Unknown]
  - Dysgeusia [Unknown]
  - Arthralgia [Unknown]
  - Fatigue [Recovered/Resolved]
  - Diarrhoea [Unknown]
  - Osteonecrosis of jaw [Recovered/Resolved]
  - Device related infection [Unknown]
  - Dyspnoea [Recovering/Resolving]
  - Toothache [Recovered/Resolved]

NARRATIVE: CASE EVENT DATE: 20150724
